FAERS Safety Report 23980417 (Version 1)
Quarter: 2024Q2

REPORT INFORMATION
  Report Type: Spontaneous
  Country: NL (occurrence: NL)
  Receive Date: 20240617
  Receipt Date: 20240617
  Transmission Date: 20240716
  Serious: Yes (Hospitalization)
  Sender: FDA-Public Use
  Company Number: None

PATIENT
  Age: 68 Year
  Sex: Female
  Weight: 72 kg

DRUGS (2)
  1. CAPECITABINE [Suspect]
     Active Substance: CAPECITABINE
     Indication: Breast cancer metastatic
     Dosage: 500MG, 4X 500MG + 2X 150MG - 2300MG 2X DAILY (100%)
     Dates: start: 20231030, end: 20231219
  2. TUCATINIB [Suspect]
     Active Substance: TUCATINIB
     Indication: Breast cancer metastatic
     Dosage: 150MG, 2X PER DAY 2 TABLETS
     Dates: start: 20231211, end: 20231219

REACTIONS (3)
  - Generalised oedema [Recovered/Resolved]
  - Defaecation urgency [Not Recovered/Not Resolved]
  - Parkinsonism [Recovered/Resolved]
